FAERS Safety Report 18080683 (Version 1)
Quarter: 2020Q3

REPORT INFORMATION
  Report Type: Spontaneous
  Country: US (occurrence: US)
  Receive Date: 20200728
  Receipt Date: 20200728
  Transmission Date: 20201103
  Serious: No
  Sender: FDA-Public Use
  Company Number: US-CARLSBAD TECHNOLOGY, INC.-2087827

PATIENT
  Age: 59 Year
  Sex: Female

DRUGS (1)
  1. GLIMEPIRIDE. [Suspect]
     Active Substance: GLIMEPIRIDE
     Route: 048
     Dates: start: 20200702, end: 20200719

REACTIONS (5)
  - Fatigue [Recovered/Resolved]
  - Cardiac disorder [Recovered/Resolved]
  - Oedema [Recovered/Resolved]
  - Asthenia [Recovered/Resolved]
  - Dyspnoea [Recovered/Resolved]
